FAERS Safety Report 11296709 (Version 1)
Quarter: 2015Q3

REPORT INFORMATION
  Report Type: Spontaneous
  Country: US (occurrence: US)
  Receive Date: 20150722
  Receipt Date: 20150722
  Transmission Date: 20151125
  Serious: No
  Sender: FDA-Public Use
  Company Number: US-ELI_LILLY_AND_COMPANY-US201006007464

PATIENT
  Age: 65 Year
  Sex: Female

DRUGS (2)
  1. EFFIENT [Suspect]
     Active Substance: PRASUGREL HYDROCHLORIDE
     Dosage: UNK, UNKNOWN
     Route: 065
     Dates: start: 201003
  2. LOVAZA [Concomitant]
     Active Substance: OMEGA-3-ACID ETHYL ESTERS
     Indication: BLOOD CHOLESTEROL
     Dosage: UNK, UNKNOWN
     Route: 065

REACTIONS (7)
  - Asthenia [Unknown]
  - Vision blurred [Unknown]
  - Back pain [Unknown]
  - Contusion [Unknown]
  - Nausea [Unknown]
  - Feeling hot [Unknown]
  - Dizziness [Unknown]

NARRATIVE: CASE EVENT DATE: 20100514
